FAERS Safety Report 17822927 (Version 1)
Quarter: 2020Q2

REPORT INFORMATION
  Report Type: Spontaneous
  Country: US (occurrence: US)
  Receive Date: 20200522
  Receipt Date: 20200522
  Transmission Date: 20200714
  Serious: Yes (Other)
  Sender: FDA-Public Use
  Company Number: None

PATIENT
  Age: 41 Year
  Sex: Male
  Weight: 114.76 kg

DRUGS (1)
  1. MESALAMINE 1.2G [Suspect]
     Active Substance: MESALAMINE
     Indication: COLITIS ULCERATIVE
     Route: 048
     Dates: start: 20061203

REACTIONS (4)
  - Colitis [None]
  - Product substitution issue [None]
  - Pain [None]
  - Therapeutic response decreased [None]

NARRATIVE: CASE EVENT DATE: 20061212
